FAERS Safety Report 15152692 (Version 1)
Quarter: 2018Q3

REPORT INFORMATION
  Report Type: Spontaneous
  Country: US (occurrence: US)
  Receive Date: 20180619
  Receipt Date: 20180619
  Transmission Date: 20181010
  Serious: No
  Sender: FDA-Public Use
  Company Number: None

PATIENT
  Age: 35 Year
  Sex: Male

DRUGS (1)
  1. COPAXONE [Suspect]
     Active Substance: GLATIRAMER ACETATE
     Dosage: ?          OTHER FREQUENCY:OTHER;?
     Route: 058
     Dates: start: 20171001, end: 20180101

REACTIONS (4)
  - Gait disturbance [None]
  - Injection site reaction [None]
  - Anxiety [None]
  - Asthenia [None]

NARRATIVE: CASE EVENT DATE: 20180101
